FAERS Safety Report 8922839 (Version 1)
Quarter: 2012Q4

REPORT INFORMATION
  Report Type: 
  Country: GB (occurrence: GB)
  Receive Date: 20121123
  Receipt Date: 20121123
  Transmission Date: 20130627
  Serious: Yes (Other)
  Sender: FDA-Public Use
  Company Number: GB-ROCHE-1149308

PATIENT
  Age: 41 Year
  Sex: Female

DRUGS (16)
  1. MIRCERA [Suspect]
     Indication: ANAEMIA
     Route: 058
     Dates: start: 20120822
  2. INSULIN [Concomitant]
  3. PREDNISOLONE [Concomitant]
     Indication: IMMUNOSUPPRESSION
     Route: 048
     Dates: start: 2008
  4. FUROSEMIDE [Concomitant]
     Indication: OEDEMA
     Route: 048
     Dates: start: 20120525
  5. NOVOMIX 30 [Concomitant]
     Indication: TYPE 2 DIABETES MELLITUS
     Dosage: 34 units/42 units
     Route: 058
     Dates: start: 20120509
  6. NIFEDIPINE LA [Concomitant]
     Indication: HYPERTENSION
     Route: 048
     Dates: start: 20120509
  7. SODIUM BICARBONATE [Concomitant]
     Indication: ACIDOSIS
     Route: 048
     Dates: start: 20120509
  8. ARIPIPRAZOLE [Concomitant]
     Indication: PSYCHOTIC DISORDER
     Route: 048
     Dates: start: 20121106
  9. ALFACALCIDOL [Concomitant]
     Indication: BLOOD PARATHYROID HORMONE
     Route: 048
     Dates: start: 20091016
  10. OMACOR [Concomitant]
     Indication: HYPERCHOLESTEROLAEMIA
     Route: 048
     Dates: start: 20090528
  11. CALCICHEW [Concomitant]
     Indication: HYPERPHOSPHATAEMIA
     Dosage: 1 tablet
     Route: 048
     Dates: start: 20090116
  12. OMEPRAZOLE [Concomitant]
     Indication: GASTROINTESTINAL DISORDER
     Route: 048
     Dates: start: 20081120
  13. MYCOPHENOLATE MOFETIL [Concomitant]
     Indication: IMMUNOSUPPRESSION
     Route: 048
     Dates: start: 20080916
  14. QUININE SULFATE [Concomitant]
     Indication: MUSCLE SPASMS
     Route: 048
     Dates: start: 20050818
  15. ASPIRIN [Concomitant]
     Indication: PLATELET COUNT DECREASED
     Route: 048
     Dates: start: 20050222
  16. AMITRIPTYLINE [Concomitant]
     Indication: NEURALGIA
     Route: 048
     Dates: start: 20050222

REACTIONS (2)
  - Platelet count decreased [Unknown]
  - Haemoglobin decreased [Recovering/Resolving]
